FAERS Safety Report 8245128-3 (Version None)
Quarter: 2012Q1

REPORT INFORMATION
  Report Type: 
  Country: None (occurrence: None)
  Receive Date: 20120329
  Receipt Date: 20120320
  Transmission Date: 20120608
  Serious: Yes (Other)
  Sender: FDA-Public Use
  Company Number: DE-GLAXOSMITHKLINE-D0074652A

PATIENT
  Sex: Male
  Weight: 65 kg

DRUGS (1)
  1. DUTASTERIDE/TAMSULOSIN HYDROCHLORIDE [Suspect]
     Dosage: .5MG PER DAY
     Route: 048
     Dates: start: 20120228, end: 20120228

REACTIONS (7)
  - ASTHENIA [None]
  - PRODUCT QUALITY ISSUE [None]
  - PERIPHERAL VASCULAR DISORDER [None]
  - LOSS OF CONSCIOUSNESS [None]
  - DIARRHOEA [None]
  - NASAL CONGESTION [None]
  - SYNCOPE [None]
